FAERS Safety Report 9330649 (Version 1)
Quarter: 2013Q2

REPORT INFORMATION
  Report Type: Spontaneous
  Country: US (occurrence: None)
  Receive Date: 20130604
  Receipt Date: 20130604
  Transmission Date: 20140414
  Serious: Yes (Life-Threatening)
  Sender: FDA-Public Use
  Company Number: None

PATIENT
  Age: 60 Year
  Sex: Male
  Weight: 77.5 kg

DRUGS (1)
  1. ETOPOSIDE [Suspect]
     Indication: PROSTATE CANCER
     Dosage: 197MG, OTHER , IV
     Route: 042
     Dates: start: 20130528, end: 20130528

REACTIONS (8)
  - Flushing [None]
  - Hyperhidrosis [None]
  - Back pain [None]
  - Hypertension [None]
  - Tachycardia [None]
  - Erythema [None]
  - Erythema [None]
  - Dyspnoea [None]
